FAERS Safety Report 23823197 (Version 1)
Quarter: 2024Q2

REPORT INFORMATION
  Report Type: Spontaneous
  Country: US (occurrence: US)
  Receive Date: 20240507
  Receipt Date: 20240507
  Transmission Date: 20240715
  Serious: No
  Sender: FDA-Public Use
  Company Number: US-ABBVIE-5745619

PATIENT
  Age: 22 Year
  Sex: Female

DRUGS (1)
  1. VIBERZI [Suspect]
     Active Substance: ELUXADOLINE
     Indication: Irritable bowel syndrome
     Dosage: 200 MILLIGRAM, FORM STRENGTH: 100 MILLIGRAM, FREQUENCY : IN THE MORNING AND EVENING
     Route: 048
     Dates: start: 20240427

REACTIONS (8)
  - Hypoaesthesia [Unknown]
  - Vertigo [Not Recovered/Not Resolved]
  - Vomiting [Unknown]
  - Feeling abnormal [Not Recovered/Not Resolved]
  - Constipation [Unknown]
  - Nausea [Unknown]
  - Pruritus [Unknown]
  - Dizziness [Unknown]

NARRATIVE: CASE EVENT DATE: 20240401
